FAERS Safety Report 8920077 (Version 1)
Quarter: 2012Q4

REPORT INFORMATION
  Report Type: 
  Country: DE (occurrence: GB)
  Receive Date: 20121121
  Receipt Date: 20121121
  Transmission Date: 20130627
  Serious: Yes (Other)
  Sender: FDA-Public Use
  Company Number: GB-BRISTOL-MYERS SQUIBB COMPANY-17137787

PATIENT
  Sex: Female

DRUGS (6)
  1. METFORMIN HCL [Suspect]
  2. GLICLAZIDE [Concomitant]
  3. RAMIPRIL [Concomitant]
  4. SIMVASTATIN [Concomitant]
  5. PARACETAMOL [Concomitant]
  6. OMEPRAZOLE [Concomitant]

REACTIONS (2)
  - Oesophageal ulcer [Unknown]
  - Oesophagitis [Unknown]
